FAERS Safety Report 21233973 (Version 1)
Quarter: 2022Q3

REPORT INFORMATION
  Report Type: Spontaneous
  Country: AU (occurrence: AU)
  Receive Date: 20220819
  Receipt Date: 20220819
  Transmission Date: 20221027
  Serious: Yes (Other)
  Sender: FDA-Public Use
  Company Number: AU-TEVA-2022-AU-2065160

PATIENT
  Age: 41 Year
  Sex: Male

DRUGS (1)
  1. AJOVY [Suspect]
     Active Substance: FREMANEZUMAB-VFRM
     Indication: Product used for unknown indication
     Route: 065

REACTIONS (9)
  - Near death experience [Unknown]
  - Blood pressure increased [Unknown]
  - Eye disorder [Unknown]
  - Gait inability [Unknown]
  - Speech disorder [Unknown]
  - Incorrect dose administered [Unknown]
  - Therapeutic product effect incomplete [Unknown]
  - Therapeutic response unexpected [Unknown]
  - Adverse event [Unknown]
